FAERS Safety Report 8331711-3 (Version None)
Quarter: 2012Q2

REPORT INFORMATION
  Report Type: 
  Country: None (occurrence: None)
  Receive Date: 20120502
  Receipt Date: 20111130
  Transmission Date: 20120825
  Serious: No
  Sender: FDA-Public Use
  Company Number: US-ASTRAZENECA-2011SE62586

PATIENT
  Age: 78 Year
  Sex: Female
  Weight: 54.4 kg

DRUGS (4)
  1. CLARITIN [Concomitant]
     Indication: HYPERSENSITIVITY
     Route: 048
  2. MULTI-VITAMINS [Concomitant]
  3. ASPIRIN [Concomitant]
     Route: 048
  4. ENTOCORT EC [Suspect]
     Indication: COLITIS MICROSCOPIC
     Route: 048
     Dates: start: 20070101

REACTIONS (2)
  - ABDOMINAL DISCOMFORT [None]
  - OFF LABEL USE [None]
